FAERS Safety Report 24178114 (Version 1)
Quarter: 2024Q3

REPORT INFORMATION
  Report Type: Other
  Country: US (occurrence: US)
  Receive Date: 20240806
  Receipt Date: 20240806
  Transmission Date: 20241017
  Serious: Yes (Life-Threatening, Hospitalization)
  Sender: WES PHARMA
  Company Number: US-WES Pharma Inc-2160044

PATIENT
  Age: 64 Year
  Sex: Female

DRUGS (26)
  1. OXYCODONE HYDROCHLORIDE [Suspect]
     Active Substance: OXYCODONE HYDROCHLORIDE
     Indication: Analgesic therapy
     Route: 048
  2. DESVENLAFAXINE [Concomitant]
     Active Substance: DESVENLAFAXINE
     Route: 048
  3. AMITRIPTYLINE HYDROCHLORIDE [Concomitant]
     Active Substance: AMITRIPTYLINE HYDROCHLORIDE
     Route: 065
  4. HALOPERIDOL [Concomitant]
     Active Substance: HALOPERIDOL
     Route: 065
  5. SUCRALFATE [Concomitant]
     Active Substance: SUCRALFATE
     Route: 065
  6. ESZOPICLONE [Concomitant]
     Active Substance: ESZOPICLONE
     Route: 065
  7. PRAVASTATIN [Concomitant]
     Active Substance: PRAVASTATIN
     Route: 065
  8. PIOGLITAZONE [Concomitant]
     Active Substance: PIOGLITAZONE
     Route: 065
  9. MONTELUKAST [Concomitant]
     Active Substance: MONTELUKAST SODIUM
     Route: 065
  10. MELOXICAM [Concomitant]
     Active Substance: MELOXICAM
     Route: 065
  11. LOSARTAN [Concomitant]
     Active Substance: LOSARTAN
     Route: 065
  12. HYDROCHLOROTHIAZIDE [Concomitant]
     Active Substance: HYDROCHLOROTHIAZIDE
     Route: 065
  13. FLUTICASONE PROPIONATE [Concomitant]
     Active Substance: FLUTICASONE PROPIONATE
     Route: 065
  14. FERROUS GLUCONATE [Concomitant]
     Active Substance: FERROUS GLUCONATE
     Route: 065
  15. FAMOTIDINE [Concomitant]
     Active Substance: FAMOTIDINE
     Route: 065
  16. ALLOPURINOL [Concomitant]
     Active Substance: ALLOPURINOL
     Route: 065
  17. CLONIDINE [Concomitant]
     Active Substance: CLONIDINE
     Route: 065
  18. BACLOFEN [Concomitant]
     Active Substance: BACLOFEN
     Route: 065
  19. GABAPENTIN [Concomitant]
     Active Substance: GABAPENTIN
     Route: 065
  20. ROPINIROLE [Concomitant]
     Active Substance: ROPINIROLE
     Route: 065
  21. ZOLPIDEM [Concomitant]
     Active Substance: ZOLPIDEM TARTRATE
     Route: 048
  22. SELEGILINE HYDROCHLORIDE [Concomitant]
     Active Substance: SELEGILINE HYDROCHLORIDE
     Route: 048
  23. PAROXETINE [Concomitant]
     Active Substance: PAROXETINE
     Route: 048
  24. MIRTAZAPINE [Concomitant]
     Active Substance: MIRTAZAPINE
     Route: 048
  25. METHYLPHENIDATE [Concomitant]
     Active Substance: METHYLPHENIDATE
     Route: 048
  26. BUPROPION [Concomitant]
     Active Substance: BUPROPION
     Route: 065

REACTIONS (1)
  - Toxicity to various agents [Recovering/Resolving]
